FAERS Safety Report 17919222 (Version 1)
Quarter: 2020Q2

REPORT INFORMATION
  Report Type: Spontaneous
  Country: US (occurrence: US)
  Receive Date: 20200619
  Receipt Date: 20200619
  Transmission Date: 20200714
  Serious: No
  Sender: FDA-Public Use
  Company Number: US-ELI_LILLY_AND_COMPANY-US202006008744

PATIENT
  Age: 43 Year
  Sex: Female

DRUGS (2)
  1. INSULIN [Concomitant]
     Active Substance: INSULIN NOS
     Indication: PRODUCT USED FOR UNKNOWN INDICATION
     Route: 065
  2. BAQSIMI [Suspect]
     Active Substance: GLUCAGON
     Indication: PRODUCT USED FOR UNKNOWN INDICATION
     Dosage: 1 DOSAGE FORM
     Route: 045

REACTIONS (6)
  - Headache [Unknown]
  - Upper-airway cough syndrome [Unknown]
  - Vomiting [Unknown]
  - Nasal discomfort [Unknown]
  - Nausea [Unknown]
  - Eye burns [Unknown]
